FAERS Safety Report 24390320 (Version 1)
Quarter: 2024Q4

REPORT INFORMATION
  Report Type: Spontaneous
  Country: GR (occurrence: GR)
  Receive Date: 20241003
  Receipt Date: 20241003
  Transmission Date: 20250115
  Serious: Yes (Hospitalization)
  Sender: ORGANON
  Company Number: GR-VIANEX-003457

PATIENT
  Age: 75 Year
  Sex: Female

DRUGS (1)
  1. MONTELUKAST SODIUM [Suspect]
     Active Substance: MONTELUKAST SODIUM
     Indication: Viral infection
     Dosage: UNK
     Route: 048

REACTIONS (2)
  - Alice in wonderland syndrome [Recovered/Resolved]
  - Product use in unapproved indication [Unknown]
